FAERS Safety Report 15463351 (Version 1)
Quarter: 2018Q4

REPORT INFORMATION
  Report Type: Spontaneous
  Country: CA (occurrence: CA)
  Receive Date: 20181004
  Receipt Date: 20181004
  Transmission Date: 20190204
  Serious: Yes (Death, Disabling)
  Sender: FDA-Public Use
  Company Number: CA-CIPHER-2018-CA-001358

PATIENT
  Age: 40 Year
  Sex: Male

DRUGS (10)
  1. ABILIFY [Suspect]
     Active Substance: ARIPIPRAZOLE
  2. MIRTAZAPINE. [Suspect]
     Active Substance: MIRTAZAPINE
  3. DULOXETINE. [Suspect]
     Active Substance: DULOXETINE
  4. GABAPENTIN. [Suspect]
     Active Substance: GABAPENTIN
  5. ZOLPIDEM [Suspect]
     Active Substance: ZOLPIDEM\ZOLPIDEM TARTRATE
     Route: 048
  6. TRAMADOL HYDROCHLORIDE. [Suspect]
     Active Substance: TRAMADOL HYDROCHLORIDE
     Indication: PRODUCT USED FOR UNKNOWN INDICATION
  7. DICLOFENAC [Concomitant]
     Active Substance: DICLOFENAC
  8. TRAZODONE [Suspect]
     Active Substance: TRAZODONE HYDROCHLORIDE
  9. PRAZOSIN. [Concomitant]
     Active Substance: PRAZOSIN
  10. RAMIPRIL. [Concomitant]
     Active Substance: RAMIPRIL

REACTIONS (11)
  - Vomiting [Fatal]
  - Analgesic drug level above therapeutic [Fatal]
  - Drug interaction [Fatal]
  - Antidepressant drug level above therapeutic [Fatal]
  - Electrocardiogram QT prolonged [Fatal]
  - Oropharyngeal pain [Fatal]
  - Sleep disorder [Recovered/Resolved with Sequelae]
  - Sudden cardiac death [Fatal]
  - Decreased appetite [Fatal]
  - Nausea [Fatal]
  - Pulmonary congestion [Fatal]
